FAERS Safety Report 5339929-9 (Version None)
Quarter: 2007Q2

REPORT INFORMATION
  Report Type: 
  Country: None (occurrence: None)
  Receive Date: 20070529
  Receipt Date: 20070521
  Transmission Date: 20071010
  Serious: Yes (Death)
  Sender: FDA-Public Use
  Company Number: 2007321835

PATIENT

DRUGS (1)
  1. NICORETTE [Suspect]
     Dosage: 15MG, (15MG), PLACENTAL
     Route: 064

REACTIONS (3)
  - DEATH NEONATAL [None]
  - DRUG EXPOSURE DURING PREGNANCY [None]
  - HERPES SIMPLEX [None]
